FAERS Safety Report 9191519 (Version 2)
Quarter: 2013Q2

REPORT INFORMATION
  Report Type: Spontaneous
  Country: DK (occurrence: DK)
  Receive Date: 20130326
  Receipt Date: 20130401
  Transmission Date: 20140414
  Serious: Yes (Hospitalization, Disabling)
  Sender: FDA-Public Use
  Company Number: PHHY2013DK027593

PATIENT
  Age: 26 Year
  Sex: Female

DRUGS (3)
  1. NOVYNETTE [Suspect]
     Indication: CONTRACEPTION
     Route: 048
  2. NOVYNETTE [Suspect]
     Indication: DYSMENORRHOEA
  3. NOVYNETTE [Suspect]
     Indication: DYSMENORRHOEA

REACTIONS (10)
  - Syncope [Recovered/Resolved with Sequelae]
  - Thrombosis [Recovered/Resolved with Sequelae]
  - Pulmonary embolism [Recovered/Resolved with Sequelae]
  - Pain in extremity [Recovered/Resolved with Sequelae]
  - Local swelling [Recovered/Resolved with Sequelae]
  - Dyspnoea [Recovered/Resolved with Sequelae]
  - Limb discomfort [Recovered/Resolved with Sequelae]
  - Sensation of heaviness [Recovered/Resolved with Sequelae]
  - Fatigue [Recovered/Resolved with Sequelae]
  - Paraesthesia [Recovered/Resolved with Sequelae]
